FAERS Safety Report 8429809-4 (Version None)
Quarter: 2012Q2

REPORT INFORMATION
  Report Type: 
  Country: None (occurrence: None)
  Receive Date: 20120323
  Receipt Date: 20110526
  Transmission Date: 20120825
  Serious: Yes (Other)
  Sender: FDA-Public Use
  Company Number: 163-21880-11022662

PATIENT
  Age: 61 Year
  Sex: Male
  Weight: 84 kg

DRUGS (4)
  1. REVLIMID [Suspect]
     Indication: LEUKAEMIA
     Dosage: 5 MG, 1 IN 1 D, PO ; 10 MG, 1 IN 1 D, PO ; 5 MG, 1 IN 1 D, PO
     Route: 048
     Dates: start: 20101201, end: 20110302
  2. REVLIMID [Suspect]
     Indication: LEUKAEMIA
     Dosage: 5 MG, 1 IN 1 D, PO ; 10 MG, 1 IN 1 D, PO ; 5 MG, 1 IN 1 D, PO
     Route: 048
     Dates: start: 20110309
  3. REVLIMID [Suspect]
     Indication: LEUKAEMIA
     Dosage: 5 MG, 1 IN 1 D, PO ; 10 MG, 1 IN 1 D, PO ; 5 MG, 1 IN 1 D, PO
     Route: 048
     Dates: start: 20100827, end: 20101124
  4. REVLIMID [Suspect]

REACTIONS (4)
  - PLATELET COUNT DECREASED [None]
  - HAEMOGLOBIN DECREASED [None]
  - WHITE BLOOD CELL COUNT DECREASED [None]
  - NEUTROPHIL COUNT DECREASED [None]
